FAERS Safety Report 9057905 (Version 3)
Quarter: 2013Q2

REPORT INFORMATION
  Report Type: Report from Study
  Country: DE (occurrence: DE)
  Receive Date: 20130210
  Receipt Date: 20130616
  Transmission Date: 20140414
  Serious: Yes (Other)
  Sender: FDA-Public Use
  Company Number: DE-UCBSA-077766

PATIENT
  Age: 37 Year
  Sex: Female

DRUGS (6)
  1. VIMPAT [Suspect]
     Indication: EPILEPSY
     Dosage: DAILY DOSE: 100 MG
     Dates: start: 20081016
  2. VIMPAT [Suspect]
     Indication: EPILEPSY
     Dosage: DECREASED DOSE
     Dates: start: 2009, end: 2009
  3. VIMPAT [Suspect]
     Indication: EPILEPSY
     Dosage: DAILY DOSE: 200 MG
     Route: 048
     Dates: end: 20090217
  4. LEVETIRACETAM [Concomitant]
     Dosage: DAILY DOSE: 2000 MG
  5. OXCARBAZEPINE [Concomitant]
     Dosage: DAILY DOSE: 300 MG+450 MG
     Route: 048
     Dates: start: 20080919, end: 2009
  6. OXCARBAZEPINE [Concomitant]
     Dosage: DAILY DOSE: 1500 MG

REACTIONS (2)
  - Convulsion [Recovered/Resolved]
  - Dizziness [Recovered/Resolved]
